FAERS Safety Report 24629527 (Version 2)
Quarter: 2025Q1

REPORT INFORMATION
  Report Type: Report from Study
  Country: US (occurrence: US)
  Receive Date: 20241118
  Receipt Date: 20250110
  Transmission Date: 20250409
  Serious: Yes (Hospitalization, Other)
  Sender: PFIZER
  Company Number: US-PFIZER INC-202400300258

PATIENT
  Age: 70 Year
  Sex: Male

DRUGS (2)
  1. VYNDAMAX [Suspect]
     Active Substance: TAFAMIDIS
     Dosage: 61 MG, DAILY
     Route: 048
  2. VYNDAMAX [Suspect]
     Active Substance: TAFAMIDIS
     Dosage: TAKE 1 CAPSULE BY MOUTH EVERY DAY
     Route: 048

REACTIONS (14)
  - Pain [Unknown]
  - Pulmonary thrombosis [Unknown]
  - Cardiac failure [Unknown]
  - Hypertension [Unknown]
  - Dyspnoea [Unknown]
  - Inflammation [Unknown]
  - Peripheral swelling [Unknown]
  - Hypoaesthesia [Unknown]
  - Paraesthesia [Unknown]
  - Cough [Unknown]
  - Suffocation feeling [Unknown]
  - Dizziness [Unknown]
  - Laziness [Unknown]
  - Somnolence [Unknown]
